FAERS Safety Report 13358077 (Version 4)
Quarter: 2017Q4

REPORT INFORMATION
  Report Type: Spontaneous
  Country: US (occurrence: US)
  Receive Date: 20170322
  Receipt Date: 20171227
  Transmission Date: 20180320
  Serious: No
  Sender: FDA-Public Use
  Company Number: US-PFIZER INC-2017118713

PATIENT
  Age: 47 Year
  Sex: Male

DRUGS (3)
  1. XELJANZ [Suspect]
     Active Substance: TOFACITINIB CITRATE
     Indication: VITAMIN D DEFICIENCY
  2. XELJANZ [Suspect]
     Active Substance: TOFACITINIB CITRATE
     Indication: TESTICULAR FAILURE
     Dosage: 5 MG, UNK
  3. XELJANZ [Suspect]
     Active Substance: TOFACITINIB CITRATE
     Indication: PSORIATIC ARTHROPATHY

REACTIONS (6)
  - Oedema peripheral [Recovering/Resolving]
  - Drug ineffective for unapproved indication [Unknown]
  - Dizziness [Unknown]
  - Weight increased [Unknown]
  - Joint effusion [Not Recovered/Not Resolved]
  - Hypertension [Unknown]

NARRATIVE: CASE EVENT DATE: 20170316
